FAERS Safety Report 6504329-2 (Version None)
Quarter: 2009Q4

REPORT INFORMATION
  Report Type: 
  Country: None (occurrence: None)
  Receive Date: 20091217
  Receipt Date: 20091208
  Transmission Date: 20100525
  Serious: Yes (Hospitalization)
  Sender: FDA-Public Use
  Company Number: TR-WATSON-2009-10517

PATIENT
  Age: 74 Year
  Sex: Female

DRUGS (1)
  1. DOBUTAMINE HCL [Suspect]
     Indication: CARDIAC STRESS TEST
     Dosage: UNK

REACTIONS (1)
  - STRESS CARDIOMYOPATHY [None]
